FAERS Safety Report 6492429-5 (Version None)
Quarter: 2009Q4

REPORT INFORMATION
  Report Type: 
  Country: None (occurrence: None)
  Receive Date: 20091214
  Receipt Date: 20091203
  Transmission Date: 20100525
  Serious: Yes (Other)
  Sender: FDA-Public Use
  Company Number: CH-KINGPHARMUSA00001-K200901502

PATIENT

DRUGS (1)
  1. FLECTOR [Suspect]
     Route: 061

REACTIONS (1)
  - LIP OEDEMA [None]
